FAERS Safety Report 11312103 (Version 1)
Quarter: 2015Q3

REPORT INFORMATION
  Report Type: Spontaneous
  Country: US (occurrence: US)
  Receive Date: 20150727
  Receipt Date: 20150727
  Transmission Date: 20151125
  Serious: Yes (Other)
  Sender: FDA-Public Use
  Company Number: US-BAYER-2015-382548

PATIENT
  Age: 56 Year
  Sex: Male
  Weight: 80.73 kg

DRUGS (14)
  1. OMEPRAZOLE. [Concomitant]
     Active Substance: OMEPRAZOLE
  2. FLORINEF ACETATE [Concomitant]
     Active Substance: FLUDROCORTISONE ACETATE
  3. HYDROCORTISONE. [Concomitant]
     Active Substance: HYDROCORTISONE
  4. IMODIUM [Concomitant]
     Active Substance: LOPERAMIDE HYDROCHLORIDE
  5. NEXAVAR [Suspect]
     Active Substance: SORAFENIB
     Indication: METASTATIC RENAL CELL CARCINOMA
     Dosage: UNK
     Route: 048
  6. POTASSIUM [Concomitant]
     Active Substance: POTASSIUM
  7. MAGNESIUM [Concomitant]
     Active Substance: MAGNESIUM
  8. COMPAZINE [Concomitant]
     Active Substance: PROCHLORPERAZINE MALEATE
  9. FLOMAX (TAMSULOSIN) [Concomitant]
  10. LISINOPRIL. [Concomitant]
     Active Substance: LISINOPRIL
  11. METOPROLOL [Concomitant]
     Active Substance: METOPROLOL
  12. ASPIRIN. [Concomitant]
     Active Substance: ASPIRIN
  13. HYDROCHLOROTHIAZIDE. [Concomitant]
     Active Substance: HYDROCHLOROTHIAZIDE
  14. ATIVAN [Concomitant]
     Active Substance: LORAZEPAM

REACTIONS (1)
  - Renal cancer metastatic [None]
